FAERS Safety Report 8166536-5 (Version None)
Quarter: 2012Q1

REPORT INFORMATION
  Report Type: 
  Country: None (occurrence: None)
  Receive Date: 20120227
  Receipt Date: 20110322
  Transmission Date: 20120608
  Serious: No
  Sender: FDA-Public Use
  Company Number: US-BRISTOL-MYERS SQUIBB COMPANY-15528045

PATIENT
  Age: 58 Year
  Sex: Female

DRUGS (2)
  1. TAXOL [Suspect]
     Indication: BREAST CANCER
     Dosage: FOR 12 WEEK
     Dates: start: 20101206
  2. ADRIAMYCIN PFS [Suspect]
     Indication: BREAST CANCER

REACTIONS (1)
  - SUBCUTANEOUS NODULE [None]
